FAERS Safety Report 7544177-8 (Version None)
Quarter: 2011Q2

REPORT INFORMATION
  Report Type: 
  Country: None (occurrence: None)
  Receive Date: 20110613
  Receipt Date: 20070312
  Transmission Date: 20111010
  Serious: Yes (Hospitalization)
  Sender: FDA-Public Use
  Company Number: PHFR2006GB00807

PATIENT
  Sex: Female

DRUGS (1)
  1. CLOZAPINE [Suspect]
     Indication: SCHIZOPHRENIA
     Route: 048
     Dates: start: 20020311

REACTIONS (4)
  - DIZZINESS [None]
  - SOMNOLENCE [None]
  - PELVIC PAIN [None]
  - JOINT DISLOCATION [None]
